FAERS Safety Report 24635666 (Version 1)
Quarter: 2024Q4

REPORT INFORMATION
  Report Type: Spontaneous
  Country: US (occurrence: US)
  Receive Date: 20241119
  Receipt Date: 20241119
  Transmission Date: 20250114
  Serious: No
  Sender: CATALYST PHARMA
  Company Number: US-CATALYST PHARMACEUTICALS-US-CATA-24-00906

PATIENT
  Age: 7 Year
  Sex: Male
  Weight: 22.095 kg

DRUGS (4)
  1. AGAMREE [Suspect]
     Active Substance: VAMOROLONE
     Indication: Duchenne muscular dystrophy
     Dosage: 3.3 ML DAILY
     Route: 048
     Dates: start: 20240605
  2. ROBITUSSIN HONEY COUGH AND CHEST DM [Concomitant]
     Indication: Cough
     Dosage: 5 ML EVERY NIGHT AT BEDTIME AS NEEDED
     Route: 065
  3. VITAMINS [Concomitant]
     Active Substance: VITAMINS
     Indication: Hypovitaminosis
     Dosage: ONCE A DAY
     Route: 065
  4. ATALUREN [Concomitant]
     Active Substance: ATALUREN
     Indication: Duchenne muscular dystrophy
     Dosage: 250 MG 3 X DAY
     Route: 065

REACTIONS (5)
  - Pyrexia [Recovered/Resolved]
  - Malaise [Not Recovered/Not Resolved]
  - Vomiting [Not Recovered/Not Resolved]
  - Cough [Not Recovered/Not Resolved]
  - Product dose omission issue [Unknown]

NARRATIVE: CASE EVENT DATE: 20240813
